FAERS Safety Report 8023966-X (Version None)
Quarter: 2012Q1

REPORT INFORMATION
  Report Type: 
  Country: None (occurrence: None)
  Receive Date: 20120105
  Receipt Date: 20120103
  Transmission Date: 20120608
  Serious: Yes (Life-Threatening, Hospitalization, Other)
  Sender: FDA-Public Use
  Company Number: CA-PFIZER INC-2006144442

PATIENT
  Age: 46 Year
  Sex: Male
  Weight: 99.8 kg

DRUGS (8)
  1. CELEXA [Concomitant]
     Route: 048
     Dates: start: 20060201
  2. DURAGESIC-100 [Concomitant]
     Route: 062
     Dates: start: 20061111
  3. VALIUM [Concomitant]
     Route: 048
     Dates: start: 20061109
  4. MORPHINE [Concomitant]
     Route: 048
     Dates: end: 20061101
  5. CLONAZEPAM [Concomitant]
     Route: 048
     Dates: end: 20061101
  6. ATIVAN [Concomitant]
     Route: 048
     Dates: end: 20061101
  7. LYRICA [Suspect]
     Indication: PAIN
     Dosage: 150 MG, 2X/DAY
     Route: 048
     Dates: start: 20061031, end: 20061119
  8. ELAVIL [Concomitant]
     Route: 048
     Dates: start: 20060501

REACTIONS (7)
  - DELIRIUM [None]
  - PARANOIA [None]
  - SUICIDAL IDEATION [None]
  - IMPULSIVE BEHAVIOUR [None]
  - HOMICIDAL IDEATION [None]
  - AGITATION [None]
  - ABNORMAL BEHAVIOUR [None]
